FAERS Safety Report 21671155 (Version 1)
Quarter: 2022Q4

REPORT INFORMATION
  Report Type: Spontaneous
  Country: US (occurrence: US)
  Receive Date: 20221202
  Receipt Date: 20221202
  Transmission Date: 20230113
  Serious: No
  Sender: FDA-Public Use
  Company Number: US-SA-SAC20221129001252

PATIENT
  Sex: Male
  Weight: 71.6 kg

DRUGS (3)
  1. DUPIXENT [Suspect]
     Active Substance: DUPILUMAB
     Indication: Dermatitis atopic
     Dosage: 300 MG, QOW
     Route: 058
     Dates: start: 20211228
  2. DUPIXENT [Suspect]
     Active Substance: DUPILUMAB
     Dosage: UNK
     Route: 058
  3. COQ10 [TOCOPHERYL ACETATE;UBIDECARENONE] [Concomitant]

REACTIONS (2)
  - Dry eye [Unknown]
  - Dermatitis atopic [Recovering/Resolving]
